FAERS Safety Report 24242279 (Version 1)
Quarter: 2024Q3

REPORT INFORMATION
  Report Type: Spontaneous
  Country: US (occurrence: US)
  Receive Date: 20240823
  Receipt Date: 20240823
  Transmission Date: 20241016
  Serious: Yes (Life-Threatening, Hospitalization)
  Sender: ACCORD
  Company Number: US-Accord-441771

PATIENT
  Age: 54 Year
  Sex: Female

DRUGS (6)
  1. METHOTREXATE [Suspect]
     Active Substance: METHOTREXATE
     Indication: Polyarthritis
     Dosage: 15 MG ONCE WEEKLY IN TWO DIVIDED DOSES
     Route: 048
  2. BUDESONIDE [Concomitant]
     Active Substance: BUDESONIDE
     Indication: Colitis ulcerative
  3. MESALAMINE [Concomitant]
     Active Substance: MESALAMINE
     Indication: Colitis ulcerative
  4. METHOTREXATE [Suspect]
     Active Substance: METHOTREXATE
     Indication: Polyarthritis
     Dosage: ERRONEOUSLY TOOK THREE 2.5 MG TABLETS TWICE A DAY, A TOTAL OF 15 MG DAILY FOR 5 DAYS
  5. METHOTREXATE [Suspect]
     Active Substance: METHOTREXATE
     Indication: Mixed connective tissue disease
     Dosage: 15 MG ONCE WEEKLY IN TWO DIVIDED DOSES
  6. METHOTREXATE [Suspect]
     Active Substance: METHOTREXATE
     Indication: Mixed connective tissue disease
     Dosage: ERRONEOUSLY TOOK THREE 2.5 MG TABLETS TWICE A DAY, A TOTAL OF 15 MG DAILY FOR 5 DAYS

REACTIONS (16)
  - Stomatitis haemorrhagic [Recovering/Resolving]
  - Pancytopenia [Recovering/Resolving]
  - Stomatitis [Recovering/Resolving]
  - Dysphagia [Recovering/Resolving]
  - Nausea [Recovering/Resolving]
  - Vomiting [Recovering/Resolving]
  - Papule [Recovering/Resolving]
  - Jaundice [Recovering/Resolving]
  - Folliculitis [Recovering/Resolving]
  - Mucosal inflammation [Recovering/Resolving]
  - Accidental overdose [Unknown]
  - Colitis [Recovering/Resolving]
  - Diarrhoea [Recovering/Resolving]
  - Skin lesion [Recovering/Resolving]
  - Gait disturbance [Recovering/Resolving]
  - Inappropriate schedule of product administration [Unknown]
